FAERS Safety Report 4838969-3 (Version None)
Quarter: 2005Q4

REPORT INFORMATION
  Report Type: 
  Country: None (occurrence: None)
  Receive Date: 20051025
  Receipt Date: 20050712
  Transmission Date: 20060501
  Serious: No
  Sender: FDA-Public Use
  Company Number: B0387455A

PATIENT

DRUGS (1)
  1. LAMICTAL [Suspect]
     Indication: DRUG USE FOR UNKNOWN INDICATION
     Dosage: 200 MG
     Dates: start: 20050705

REACTIONS (3)
  - DRUG PRESCRIBING ERROR [None]
  - NO ADVERSE EFFECT [None]
  - WRONG DRUG ADMINISTERED [None]
